FAERS Safety Report 20012708 (Version 2)
Quarter: 2021Q4

REPORT INFORMATION
  Report Type: Spontaneous
  Country: BE (occurrence: None)
  Receive Date: 20211029
  Receipt Date: 20211110
  Transmission Date: 20220304
  Serious: Yes (Life-Threatening, Hospitalization, Other)
  Sender: FDA-Public Use
  Company Number: 2021A787184

PATIENT
  Age: 60 Year
  Sex: Female
  Weight: 54 kg

DRUGS (2)
  1. LYNPARZA [Suspect]
     Active Substance: OLAPARIB
     Indication: Ovarian cancer
     Route: 048
     Dates: start: 20210426, end: 20211024
  2. LYNPARZA [Suspect]
     Active Substance: OLAPARIB
     Indication: Acquired gene mutation
     Route: 048
     Dates: start: 20210426, end: 20211024

REACTIONS (3)
  - Myelodysplastic syndrome [Recovering/Resolving]
  - Anaemia [Recovered/Resolved]
  - Cardiac failure [Unknown]

NARRATIVE: CASE EVENT DATE: 20211024
